FAERS Safety Report 15138164 (Version 2)
Quarter: 2018Q3

REPORT INFORMATION
  Report Type: Report from Study
  Country: None (occurrence: CA)
  Receive Date: 20180713
  Receipt Date: 20180824
  Transmission Date: 20181010
  Serious: Yes (Hospitalization)
  Sender: FDA-Public Use
  Company Number: CA-ABBVIE-18K-028-2416472-00

PATIENT
  Sex: Male

DRUGS (1)
  1. HUMIRA [Suspect]
     Active Substance: ADALIMUMAB
     Indication: CROHN^S DISEASE
     Route: 058
     Dates: start: 20171017

REACTIONS (4)
  - Abdominal adhesions [Unknown]
  - Abdominal distension [Recovered/Resolved]
  - Rectal discharge [Not Recovered/Not Resolved]
  - Small intestinal obstruction [Unknown]

NARRATIVE: CASE EVENT DATE: 2018
